FAERS Safety Report 5643947-0 (Version None)
Quarter: 2008Q1

REPORT INFORMATION
  Report Type: 
  Country: None (occurrence: None)
  Receive Date: 20080226
  Receipt Date: 20080214
  Transmission Date: 20080703
  Serious: Yes (Hospitalization)
  Sender: FDA-Public Use
  Company Number: 2007US002443

PATIENT
  Age: 59 Year
  Sex: Female
  Weight: 58 kg

DRUGS (6)
  1. AMEVIVE [Suspect]
     Indication: PSORIASIS
     Dosage: 15 MG, WEEKLY, INTRAMUSCULAR
     Route: 030
     Dates: start: 20040811, end: 20050607
  2. FOSAMAX [Concomitant]
  3. PREMARIN [Concomitant]
  4. DIOVAN [Concomitant]
  5. SERTRALINE [Concomitant]
  6. LEVOTHYROXINE SODIUM [Concomitant]

REACTIONS (3)
  - FRACTURE NONUNION [None]
  - HUMERUS FRACTURE [None]
  - RADIAL NERVE PALSY [None]
